FAERS Safety Report 16896447 (Version 1)
Quarter: 2019Q4

REPORT INFORMATION
  Report Type: Spontaneous
  Country: US (occurrence: US)
  Receive Date: 20191008
  Receipt Date: 20191008
  Transmission Date: 20200122
  Serious: Yes (Death, Hospitalization)
  Sender: FDA-Public Use
  Company Number: US-KALEO, INC.-2019KL000153

PATIENT
  Age: 52 Year
  Sex: Male

DRUGS (2)
  1. IMMUNOTHERAPY [Concomitant]
     Indication: ALLERGY TO ARTHROPOD STING
  2. AUVI-Q [Suspect]
     Active Substance: EPINEPHRINE
     Indication: ANAPHYLACTIC REACTION
     Dates: start: 201909, end: 201909

REACTIONS (3)
  - Hospitalisation [Fatal]
  - Death [Fatal]
  - Expired product administered [Recovered/Resolved]

NARRATIVE: CASE EVENT DATE: 201909
